FAERS Safety Report 10367312 (Version 1)
Quarter: 2014Q1

REPORT INFORMATION
  Report Type: Spontaneous
  Country: US (occurrence: None)
  Receive Date: 20140306
  Receipt Date: 20140306
  Transmission Date: 20141002
  Serious: Yes (Hospitalization)
  Sender: FDA-Public Use
  Company Number: 163-21880-13023569

PATIENT
  Age: 73 Year
  Sex: Male

DRUGS (3)
  1. REVLIMID (LENALIDOMIDE) (5 MILLIGRAM, CAPSULES) [Suspect]
     Indication: MYELOFIBROSIS
     Dosage: 25-JAN-2013 - PERMANENTLY DISCONTINUED?5 MG, 21 IN 21 D, PO
     Route: 048
     Dates: start: 20130125
  2. FLOMAX (TAMSULOSIN HYDROCHLORIDE) (UNKNOWN) [Concomitant]
  3. TYLENOL (PARACETAMOL) (UNKNOWN) [Concomitant]

REACTIONS (2)
  - Upper respiratory tract infection [None]
  - Full blood count decreased [None]
